FAERS Safety Report 22049683 (Version 4)
Quarter: 2024Q4

REPORT INFORMATION
  Report Type: Spontaneous
  Country: IN (occurrence: IN)
  Receive Date: 20230301
  Receipt Date: 20241001
  Transmission Date: 20250115
  Serious: Yes (Other)
  Sender: PFIZER
  Company Number: IN-PFIZER INC-202101198789

PATIENT
  Age: 50 Year
  Sex: Female

DRUGS (8)
  1. PALBOCICLIB [Suspect]
     Active Substance: PALBOCICLIB
     Indication: Breast cancer metastatic
     Dosage: 125 MG
     Route: 048
     Dates: start: 20201230
  2. PALBOCICLIB [Suspect]
     Active Substance: PALBOCICLIB
     Dosage: OD (MORNING-1, DAILY FOR 3 WEEKS ON, 1 WEEK OFF)
     Route: 048
  3. LETROZOLE [Concomitant]
     Active Substance: LETROZOLE
     Dosage: 2 CYCLES
     Dates: start: 202101
  4. LETROZOLE [Concomitant]
     Active Substance: LETROZOLE
     Dosage: 6 MONTHS
  5. CALCIUM CARBONATE\CHOLECALCIFEROL [Concomitant]
     Active Substance: CALCIUM CARBONATE\CHOLECALCIFEROL
     Dosage: 500MG 1-0-0 X DAILY
  6. ROMIPLOSTIM [Concomitant]
     Active Substance: ROMIPLOSTIM
     Dosage: 0.7 UL S/C O.D STAT DOSE
     Route: 058
  7. LEUPROLIDE ACETATE [Concomitant]
     Active Substance: LEUPROLIDE ACETATE
     Dosage: 3.75 MG ONCE A MONTH
     Route: 058
  8. FULVESTRANT [Concomitant]
     Active Substance: FULVESTRANT
     Dosage: 500MG ON DAYS 0, 14, 28 (LOADING DOSE) FOLLOWED BY 500MG ON 1 MONTH X2 ILLEGIBLE DOSAGE
     Route: 030

REACTIONS (6)
  - Haemorrhage [Unknown]
  - Neoplasm progression [Unknown]
  - Pelvic pain [Unknown]
  - Haemoglobin decreased [Unknown]
  - White blood cell count decreased [Unknown]
  - Platelet count decreased [Unknown]

NARRATIVE: CASE EVENT DATE: 20230218
